FAERS Safety Report 8772691 (Version 2)
Quarter: 2012Q4

REPORT INFORMATION
  Report Type: 
  Country: FR (occurrence: FR)
  Receive Date: 20120905
  Receipt Date: 20120911
  Transmission Date: 20130627
  Serious: Yes (Life-Threatening, Other)
  Sender: FDA-Public Use
  Company Number: FR-PFIZER INC-2012216396

PATIENT
  Age: 82 Year
  Sex: Female

DRUGS (3)
  1. CORDARONE [Suspect]
     Indication: ATRIAL FIBRILLATION
     Dosage: 200 mg, daily
     Route: 048
     Dates: start: 20120401
  2. DUOPLAVIN [Suspect]
     Indication: CORONARY ANGIOPLASTY
     Dosage: 75mg/75 mg, daily
     Route: 048
     Dates: start: 20120401, end: 20120501
  3. PREVISCAN [Suspect]
     Indication: ATRIAL FIBRILLATION
     Dosage: 10 mg, daily
     Route: 048
     Dates: end: 20120501

REACTIONS (7)
  - Subdural haematoma [Recovering/Resolving]
  - Haematoma [Unknown]
  - Femoral neck fracture [None]
  - Loss of consciousness [None]
  - Coronary artery stenosis [None]
  - International normalised ratio increased [None]
  - Effusion [None]
